FAERS Safety Report 8378676-6 (Version None)
Quarter: 2012Q2

REPORT INFORMATION
  Report Type: 
  Country: None (occurrence: None)
  Receive Date: 20120522
  Receipt Date: 20120515
  Transmission Date: 20120825
  Serious: Yes (Other)
  Sender: FDA-Public Use
  Company Number: US-ALLERGAN-1205690US

PATIENT
  Age: 85 Year
  Sex: Female
  Weight: 49.887 kg

DRUGS (2)
  1. OZURDEX [Suspect]
     Indication: RETINAL VEIN OCCLUSION
     Dosage: 0.7 MG, SINGLE
     Route: 031
     Dates: start: 20120327, end: 20120327
  2. OZURDEX [Suspect]
     Indication: RETINAL OEDEMA

REACTIONS (2)
  - VISUAL IMPAIRMENT [None]
  - DEVICE DISLOCATION [None]
